FAERS Safety Report 11171386 (Version 1)
Quarter: 2015Q2

REPORT INFORMATION
  Report Type: Spontaneous
  Country: US (occurrence: None)
  Receive Date: 20150605
  Receipt Date: 20150605
  Transmission Date: 20150821
  Serious: Yes (Hospitalization)
  Sender: FDA-Public Use
  Company Number: None

PATIENT
  Age: 67 Year
  Sex: Female
  Weight: 54.3 kg

DRUGS (1)
  1. GEMCITABINE HYDROCHLORIDE. [Suspect]
     Active Substance: GEMCITABINE HYDROCHLORIDE
     Dates: end: 20150205

REACTIONS (5)
  - Hypoperfusion [None]
  - Pulmonary hypertension [None]
  - Dyspnoea [None]
  - Oropharyngeal pain [None]
  - Right ventricular dysfunction [None]

NARRATIVE: CASE EVENT DATE: 20150208
